FAERS Safety Report 6992604-7 (Version None)
Quarter: 2010Q3

REPORT INFORMATION
  Report Type: 
  Country: None (occurrence: None)
  Receive Date: 20100915
  Receipt Date: 20100903
  Transmission Date: 20110219
  Serious: Yes (Hospitalization)
  Sender: FDA-Public Use
  Company Number: LEO-2010-00805

PATIENT
  Age: 65 Year
  Sex: Female

DRUGS (7)
  1. INNOHEP [Suspect]
     Indication: PRODUCT USED FOR UNKNOWN INDICATION
     Dosage: 18000 IU (18000 IU, 1 IN 1 D), SUBCUTANEOUS
     Route: 058
     Dates: start: 20100708, end: 20100716
  2. AMOXICILLIN AND CLAVULANATE POTASSIUM [Suspect]
     Indication: CELLULITIS
     Dosage: 3 G (1 GM, 3 IN 1 IN D) ORAL;  4 GM (1 GM,4 IN 1 D),ORAL
     Route: 048
     Dates: start: 20100707, end: 20100708
  3. AMOXICILLIN AND CLAVULANATE POTASSIUM [Suspect]
     Indication: CELLULITIS
     Dosage: 3 G (1 GM, 3 IN 1 IN D) ORAL;  4 GM (1 GM,4 IN 1 D),ORAL
     Route: 048
     Dates: start: 20100709, end: 20100714
  4. CLAMOXYL (AMOXICILLIN) (1 GRAM) [Suspect]
     Indication: CELLULITIS
     Dosage: 3 GM (1 GM, 3 IN 1 D), ORAL;  4 GM (1 GM,4 IN 1 D),ORAL
     Route: 048
     Dates: start: 20100707, end: 20100708
  5. CLAMOXYL (AMOXICILLIN) (1 GRAM) [Suspect]
     Indication: CELLULITIS
     Dosage: 3 GM (1 GM, 3 IN 1 D), ORAL;  4 GM (1 GM,4 IN 1 D),ORAL
     Route: 048
     Dates: start: 20100709, end: 20100714
  6. PREVISCAN (FLUINDIONE) [Concomitant]
  7. ARIXTRA [Concomitant]

REACTIONS (7)
  - CELLULITIS [None]
  - ERYTHEMA [None]
  - OVERDOSE [None]
  - PRURITUS [None]
  - RASH MACULAR [None]
  - SKIN EXFOLIATION [None]
  - TOXIC SKIN ERUPTION [None]
